FAERS Safety Report 20144136 (Version 1)
Quarter: 2021Q4

REPORT INFORMATION
  Report Type: Spontaneous
  Country: NL (occurrence: NL)
  Receive Date: 20211203
  Receipt Date: 20211203
  Transmission Date: 20220304
  Serious: Yes (Other)
  Sender: FDA-Public Use
  Company Number: None

PATIENT
  Age: 83 Year
  Sex: Female
  Weight: 91.3 kg

DRUGS (10)
  1. PROPRANOLOL [Suspect]
     Active Substance: PROPRANOLOL HYDROCHLORIDE
     Indication: Hypertension
     Dosage: 40 MILLIGRAM DAILY;
     Dates: start: 20211024, end: 20211025
  2. SODIUM BICARBONATE [Concomitant]
     Active Substance: SODIUM BICARBONATE
     Dosage: 500 MG (MILLIGRAM) , THERAPY START DATE AND END DATE : ASKU
  3. MACROGOL/SALTS (MOVIC/MOLAX/LAXT/GEN) [Concomitant]
     Dosage: POWDER FOR DRINK , THERAPY START DATE AND END DATE : ASKU
  4. ALBUTEROL\IPRATROPIUM [Concomitant]
     Active Substance: ALBUTEROL\IPRATROPIUM
     Dosage: 1/0.2 MG/ML (MILLIGRAMS PER MILLILITER) , STRENGTH : 1/0.2MG/ML , THERAPY START DATE AND END DATE :
  5. INSULIN DETEMIR/ LEVEMIR FLEXPEN [Concomitant]
     Dosage: 100 UNITS/ML (UNITS PER MILLILITER) , PEN 3ML , THERAPY START DATE AND END DATE : ASKU
  6. INSULINE ASPART [Concomitant]
     Dosage: 100 UNITS/ML (UNITS PER MILLILITER) , THERAPY START DATE AND END DATE : ASKU
  7. NIFEDIPINE [Concomitant]
     Active Substance: NIFEDIPINE
     Dosage: TABLET RETARD  20 MG , THERAPY START DATE AND END DATE : ASKU
  8. FUROSEMIDE [Concomitant]
     Active Substance: FUROSEMIDE
     Dosage: 10 MG/ML (MILLIGRAMS PER MILLILITER) , THERAPY START DATE AND END DATE : ASKU
  9. SIMVASTATIN [Concomitant]
     Active Substance: SIMVASTATIN
     Dosage: 40 MG (MILLIGRAM) , SIMVASTATINE TABLET FO , THERAPY START DATE AND END DATE : ASKU
  10. NADROPARIN [Concomitant]
     Active Substance: NADROPARIN
     Dosage: 9500 IU/ML (UNITS PER MILLILITER) , THERAPY START DATE AND END DATE : ASKU

REACTIONS (1)
  - Atrioventricular block complete [Recovered/Resolved]

NARRATIVE: CASE EVENT DATE: 20211025
